FAERS Safety Report 22181926 (Version 1)
Quarter: 2023Q2

REPORT INFORMATION
  Report Type: Spontaneous
  Country: US (occurrence: None)
  Receive Date: 20230405
  Receipt Date: 20230405
  Transmission Date: 20230721
  Serious: No
  Sender: FDA-Public Use
  Company Number: None

PATIENT
  Age: 65 Year
  Sex: Male
  Weight: 70.9 kg

DRUGS (6)
  1. TEMOZOLOMIDE [Suspect]
     Active Substance: TEMOZOLOMIDE
     Indication: Brain neoplasm malignant
     Dosage: OTHER FREQUENCY : 21D OFF 28D;?
     Route: 048
  2. ATROVASTATIN [Concomitant]
  3. AVASTATIN [Concomitant]
  4. LEVETIRACETAM [Concomitant]
     Active Substance: LEVETIRACETAM
  5. LISINOPRIL [Concomitant]
  6. ONDANSETRON [Concomitant]

REACTIONS (1)
  - Drug ineffective [None]
